FAERS Safety Report 21663121 (Version 1)
Quarter: 2022Q4

REPORT INFORMATION
  Report Type: Spontaneous
  Country: GB (occurrence: GB)
  Receive Date: 20221130
  Receipt Date: 20221130
  Transmission Date: 20230113
  Serious: Yes (Other)
  Sender: FDA-Public Use
  Company Number: GB-GLAXOSMITHKLINE-GB2022GSK178506

PATIENT

DRUGS (2)
  1. DOSTARLIMAB [Suspect]
     Active Substance: DOSTARLIMAB
     Indication: Metastases to ovary
     Dosage: UNK
  2. NIRAPARIB [Suspect]
     Active Substance: NIRAPARIB
     Indication: Metastases to ovary
     Dosage: UNK

REACTIONS (9)
  - Vision blurred [Recovered/Resolved]
  - Drug-induced liver injury [Recovered/Resolved]
  - Uveitis [Recovered/Resolved]
  - Papilloedema [Recovered/Resolved]
  - Visual field defect [Recovered/Resolved]
  - Scleral oedema [Recovered/Resolved]
  - Exophthalmos [Recovered/Resolved]
  - Myositis [Recovered/Resolved]
  - Papillitis [Recovered/Resolved]
